FAERS Safety Report 20802633 (Version 1)
Quarter: 2022Q2

REPORT INFORMATION
  Report Type: Spontaneous
  Country: US (occurrence: None)
  Receive Date: 20220509
  Receipt Date: 20220509
  Transmission Date: 20220720
  Serious: Yes (Hospitalization)
  Sender: FDA-Public Use
  Company Number: None

PATIENT
  Age: 40 Year
  Sex: Male

DRUGS (1)
  1. WARFARIN [Suspect]
     Active Substance: WARFARIN
     Indication: Deep vein thrombosis
     Dosage: FREQUENCY : DAILY;?
     Route: 048
     Dates: start: 20200103

REACTIONS (8)
  - Haemoptysis [None]
  - Chest pain [None]
  - Loss of consciousness [None]
  - Haemoptysis [None]
  - Dyspnoea [None]
  - Therapy interrupted [None]
  - Lung opacity [None]
  - Heart rate increased [None]

NARRATIVE: CASE EVENT DATE: 20220310
